FAERS Safety Report 8159348-X (Version None)
Quarter: 2012Q1

REPORT INFORMATION
  Report Type: 
  Country: None (occurrence: None)
  Receive Date: 20120223
  Receipt Date: 20120216
  Transmission Date: 20120608
  Serious: Yes (Death, Other)
  Sender: FDA-Public Use
  Company Number: US-PFIZER INC-2008002971

PATIENT
  Sex: Male

DRUGS (3)
  1. GABAPENTIN [Suspect]
     Dosage: OVERDOSE AMOUNT UNKNOWN
     Route: 048
  2. HYDROCODONE [Suspect]
     Dosage: OVERDOSE AMOUNT UNKNOWN
     Route: 048
  3. VENLAFAXINE HCL [Suspect]
     Dosage: OVERDOSE AMOUNT UNKNOWN
     Route: 048

REACTIONS (2)
  - COMPLETED SUICIDE [None]
  - INTENTIONAL OVERDOSE [None]
